FAERS Safety Report 7741353-6 (Version None)
Quarter: 2011Q3

REPORT INFORMATION
  Report Type: 
  Country: None (occurrence: None)
  Receive Date: 20110909
  Receipt Date: 20110906
  Transmission Date: 20111222
  Serious: No
  Sender: FDA-Public Use
  Company Number: US-PFIZER INC-2011208461

PATIENT
  Sex: Male

DRUGS (6)
  1. SUTENT [Suspect]
     Dosage: 50 MG, 1X/DAY
     Route: 048
  2. LISINOPRIL [Concomitant]
     Dosage: 10 MG, UNK
     Route: 048
  3. METFORMIN [Concomitant]
     Dosage: 1000 MG, UNK
     Route: 048
  4. SIMVASTATIN [Concomitant]
     Dosage: 10 MG, UNK
     Route: 048
  5. PSYLLIUM [Concomitant]
     Dosage: 28 %, UNK
  6. LEVOTHYROXINE [Concomitant]
     Dosage: 112 UG, UNK
     Route: 048

REACTIONS (1)
  - ORAL PAIN [None]
